FAERS Safety Report 5452414-9 (Version None)
Quarter: 2007Q3

REPORT INFORMATION
  Report Type: 
  Country: None (occurrence: None)
  Receive Date: 20070914
  Receipt Date: 20070907
  Transmission Date: 20080115
  Serious: Yes (Other)
  Sender: FDA-Public Use
  Company Number: US-ELI_LILLY_AND_COMPANY-US200606001624

PATIENT
  Age: 13 Year
  Sex: Male
  Weight: 52.7 kg

DRUGS (5)
  1. SOMATROPIN [Suspect]
     Indication: GROWTH HORMONE DEFICIENCY
     Dosage: 24 MG, EACH EVENING
     Route: 058
     Dates: start: 20060407, end: 20060528
  2. RISPERDAL                               /SWE/ [Concomitant]
     Dosage: UNK, AS NEEDED
     Dates: start: 20030929
  3. LUVOX [Concomitant]
     Dosage: UNK, DAILY (1/D)
     Dates: start: 20030929
  4. TOPAMAX                                 /AUS/ [Concomitant]
     Dosage: UNK, DAILY (1/D)
     Dates: start: 20030929
  5. STRATTERA                               /USA/ [Concomitant]
     Dosage: UNK, DAILY (1/D)
     Dates: start: 20030929

REACTIONS (2)
  - AGGRESSION [None]
  - ASPERGER'S DISORDER [None]
